FAERS Safety Report 18419265 (Version 2)
Quarter: 2021Q1

REPORT INFORMATION
  Report Type: Report from Study
  Country: US (occurrence: US)
  Receive Date: 20201023
  Receipt Date: 20210106
  Transmission Date: 20210419
  Serious: Yes (Other)
  Sender: FDA-Public Use
  Company Number: US-MYLANLABS-2020M1088509

PATIENT
  Sex: Female
  Weight: 97.5 kg

DRUGS (5)
  1. CLOBETASOL [Concomitant]
     Active Substance: CLOBETASOL
     Dosage: AS DIRECTED
  2. DERMA?SMOOTHE/FS [Concomitant]
     Active Substance: FLUOCINOLONE ACETONIDE
     Dosage: AAA OF THE SCALP, HS FOR 1 WEEK
     Dates: start: 20200723
  3. TRIAMCINOLONE ACETONIDE. [Concomitant]
     Active Substance: TRIAMCINOLONE ACETONIDE
     Indication: PRURITUS
     Dosage: TWICE DAILY, 2?3 DAYS A WEEK ON AFFECTED AREAS
     Route: 061
     Dates: start: 20200723
  4. AMNESTEEM [Suspect]
     Active Substance: ISOTRETINOIN
     Indication: ACNE
     Dosage: 40 MILLIGRAM, BID
     Route: 048
     Dates: start: 20200623, end: 20200922
  5. KETOCONAZOLE. [Concomitant]
     Active Substance: KETOCONAZOLE
     Dosage: USE 1?2X PER WEEK, LEAVE IN PLACE FOR 5 MINUTES, THEN RINSE OFF WITH WATER
     Dates: start: 20200825

REACTIONS (3)
  - Idiopathic intracranial hypertension [Recovered/Resolved]
  - Papilloedema [Recovered/Resolved]
  - Intracranial pressure increased [Recovered/Resolved]
